FAERS Safety Report 4522022-2 (Version None)
Quarter: 2004Q4

REPORT INFORMATION
  Report Type: 
  Country: None (occurrence: None)
  Receive Date: 20041207
  Receipt Date: 20041123
  Transmission Date: 20050328
  Serious: Yes (Hospitalization)
  Sender: FDA-Public Use
  Company Number: US_0405103177

PATIENT
  Age: 80 Year
  Sex: Female
  Weight: 54 kg

DRUGS (16)
  1. FORTEO [Suspect]
     Indication: OSTEOPOROSIS
     Dosage: 750 UG
     Dates: start: 20040212
  2. ADVAIR DISKUS 100/50 [Concomitant]
  3. ALBUTEROL [Concomitant]
  4. ASPIRIN [Concomitant]
  5. DIGOXIN [Concomitant]
  6. FOLIC ACID [Concomitant]
  7. KLOR-CON [Concomitant]
  8. NEXIUM [Concomitant]
  9. PEPCID [Concomitant]
  10. ZESTRIL [Concomitant]
  11. CALCIUM WITH VITAMIN D [Concomitant]
  12. PREDNISONE [Concomitant]
  13. METHOTREXATE [Concomitant]
  14. DIOVAN [Concomitant]
  15. VITAMIN D [Concomitant]
  16. PLENDIL [Concomitant]

REACTIONS (11)
  - ABDOMINAL STRANGULATED HERNIA [None]
  - ABDOMINAL WALL DISORDER [None]
  - BLOOD MAGNESIUM INCREASED [None]
  - HERNIA [None]
  - HYPERCALCAEMIA [None]
  - HYPERKALAEMIA [None]
  - INTESTINAL STOMA COMPLICATION [None]
  - MALNUTRITION [None]
  - MUSCULAR WEAKNESS [None]
  - SMALL INTESTINAL OBSTRUCTION [None]
  - URINARY TRACT INFECTION [None]
